FAERS Safety Report 14547718 (Version 1)
Quarter: 2018Q1

REPORT INFORMATION
  Report Type: Spontaneous
  Country: US (occurrence: US)
  Receive Date: 20180219
  Receipt Date: 20180219
  Transmission Date: 20180509
  Serious: No
  Sender: FDA-Public Use
  Company Number: US-TEVA-2018-US-859592

PATIENT
  Sex: Female

DRUGS (6)
  1. BUPROPION. [Suspect]
     Active Substance: BUPROPION
     Indication: DEPRESSION
     Route: 065
     Dates: start: 201712
  2. AMITRIPTYLINE [Concomitant]
     Active Substance: AMITRIPTYLINE
     Route: 065
  3. RANITIDINE. [Concomitant]
     Active Substance: RANITIDINE
     Route: 065
  4. VITAMIN D [Concomitant]
     Active Substance: CHOLECALCIFEROL
     Route: 065
  5. NEXIUM [Concomitant]
     Active Substance: ESOMEPRAZOLE MAGNESIUM
     Route: 065
  6. MULTIVITAMIN [Concomitant]
     Active Substance: VITAMINS
     Route: 065

REACTIONS (6)
  - Insomnia [Unknown]
  - Hyperhidrosis [Unknown]
  - Weight increased [Unknown]
  - Dyspnoea [Unknown]
  - Increased appetite [Unknown]
  - Abdominal distension [Unknown]

NARRATIVE: CASE EVENT DATE: 201712
